FAERS Safety Report 9880587 (Version 3)
Quarter: 2014Q1

REPORT INFORMATION
  Report Type: Spontaneous
  Country: GB (occurrence: GB)
  Receive Date: 20140207
  Receipt Date: 20140224
  Transmission Date: 20141002
  Serious: Yes (Life-Threatening, Hospitalization)
  Sender: FDA-Public Use
  Company Number: GB-JNJFOC-20140101769

PATIENT
  Age: 58 Year
  Sex: Female

DRUGS (4)
  1. STELARA [Suspect]
     Indication: PSORIASIS
     Dosage: FOUR INJECTIONS.
     Route: 058
     Dates: start: 20130411, end: 201312
  2. GLICLAZIDE [Concomitant]
     Indication: DIABETES MELLITUS
     Route: 065
  3. DOXAZOSIN [Concomitant]
     Indication: HYPERTENSION
     Dosage: MORE THAN 3 YEARS.
     Route: 065
  4. METFORMIN [Concomitant]
     Indication: DIABETES MELLITUS
     Dosage: MORE THAN 3 YEARS
     Route: 048

REACTIONS (1)
  - Lung adenocarcinoma [Not Recovered/Not Resolved]
